FAERS Safety Report 7273279-9 (Version None)
Quarter: 2011Q1

REPORT INFORMATION
  Report Type: 
  Country: None (occurrence: None)
  Receive Date: 20110203
  Receipt Date: 20101229
  Transmission Date: 20110831
  Serious: No
  Sender: FDA-Public Use
  Company Number: US-ABBOTT-11P-163-0694730-00

PATIENT
  Age: 65 Year
  Sex: Female
  Weight: 45.4 kg

DRUGS (2)
  1. SYNTHROID [Suspect]
     Dates: start: 20101217
  2. SYNTHROID [Suspect]
     Indication: HYPOTHYROIDISM
     Dates: start: 20000101, end: 20101217

REACTIONS (1)
  - BLOOD THYROID STIMULATING HORMONE INCREASED [None]
